FAERS Safety Report 7077758-9 (Version None)
Quarter: 2010Q4

REPORT INFORMATION
  Report Type: 
  Country: None (occurrence: None)
  Receive Date: 20101101
  Receipt Date: 20101018
  Transmission Date: 20110411
  Serious: Yes (Hospitalization, Other)
  Sender: FDA-Public Use
  Company Number: PHHY2010JP71082

PATIENT
  Sex: Female

DRUGS (8)
  1. TASIGNA [Suspect]
     Indication: CHRONIC MYELOID LEUKAEMIA
     Dosage: 200 MG DAILY
     Route: 048
     Dates: start: 20090713, end: 20090906
  2. TASIGNA [Suspect]
     Dosage: 200 MG DAILY
     Route: 048
     Dates: start: 20090929, end: 20091011
  3. TASIGNA [Suspect]
     Dosage: 200 MG DAILY
     Route: 048
     Dates: start: 20091019, end: 20091101
  4. TASIGNA [Suspect]
     Dosage: 200 MG DAILY
     Route: 048
     Dates: start: 20091109, end: 20091209
  5. TASIGNA [Suspect]
     Dosage: 200 MG DAILY
     Route: 048
     Dates: start: 20091216, end: 20091230
  6. TASIGNA [Suspect]
     Dosage: 200 MG DAILY
     Route: 048
     Dates: start: 20100118, end: 20100131
  7. LASIX [Concomitant]
     Indication: OEDEMA
     Dosage: 20MG
     Route: 048
     Dates: start: 20050101
  8. CLARITHROMYCIN [Concomitant]
     Indication: CHRONIC SINUSITIS
     Dosage: 200MG
     Route: 048
     Dates: start: 20050101

REACTIONS (2)
  - ILEUS [None]
  - WHITE BLOOD CELL COUNT DECREASED [None]
